FAERS Safety Report 5311362-5 (Version None)
Quarter: 2007Q2

REPORT INFORMATION
  Report Type: 
  Country: None (occurrence: None)
  Receive Date: 20070428
  Receipt Date: 20070428
  Transmission Date: 20071010
  Serious: Yes (Hospitalization)
  Sender: FDA-Public Use
  Company Number: None

PATIENT
  Age: 45 Year
  Sex: Male
  Weight: 113.4 kg

DRUGS (12)
  1. LISINOPRIL [Suspect]
     Indication: HYPERTENSION
     Dosage: 20MG DAILY PO
     Route: 048
     Dates: start: 20061211
  2. LISINOPRIL [Suspect]
     Dosage: 10MG PO DAILY
     Route: 048
     Dates: start: 20060511
  3. VARNENAFIL [Concomitant]
  4. THERAPEUTIC VITAMIN-MINERAL [Concomitant]
  5. SALSALATE [Concomitant]
  6. PSEUDOEPHEDRINE HCL [Concomitant]
  7. OXYMETAZOLINE [Concomitant]
  8. METHOCARBAMOL [Concomitant]
  9. LISINOPRIL [Concomitant]
  10. GUAIFENENSIN/LIQUID [Concomitant]
  11. FLUNISOLIDE [Concomitant]
  12. CHLORPHENIRAMINE MALEATE [Concomitant]

REACTIONS (6)
  - DYSPHONIA [None]
  - DYSPNOEA [None]
  - INCORRECT DOSE ADMINISTERED [None]
  - LIP SWELLING [None]
  - PRURITUS [None]
  - SWELLING FACE [None]
